FAERS Safety Report 24843059 (Version 1)
Quarter: 2025Q1

REPORT INFORMATION
  Report Type: Report from Study
  Country: US (occurrence: US)
  Receive Date: 20250115
  Receipt Date: 20250115
  Transmission Date: 20250409
  Serious: No
  Sender: HRA PHARMA
  Company Number: US-ORG100014127-2024000144

PATIENT
  Age: 50 Year
  Sex: Female

DRUGS (14)
  1. LYSODREN [Suspect]
     Active Substance: MITOTANE
     Indication: Adrenal gland cancer
     Dosage: 500 MG; ONE TABLETS TWICE DAILY
     Route: 048
     Dates: start: 20240402
  2. LYSODREN [Suspect]
     Active Substance: MITOTANE
     Indication: Adrenal gland cancer
     Dosage: 500 MG; 4 TABLETS TWICE DAILY
     Route: 048
  3. Aspirin Chew 81mg [Concomitant]
     Indication: Product used for unknown indication
  4. Fish Oil Cap 1200mg [Concomitant]
     Indication: Product used for unknown indication
  5. HYDRALAZINE [Concomitant]
     Active Substance: HYDRALAZINE HYDROCHLORIDE
     Indication: Product used for unknown indication
  6. Loratadine Tab 10mg [Concomitant]
     Indication: Product used for unknown indication
  7. LOSARTAN POTASSIUM [Interacting]
     Active Substance: LOSARTAN POTASSIUM
     Indication: Product used for unknown indication
  8. Torsemide Tab 20mg [Concomitant]
     Indication: Product used for unknown indication
  9. xanax tab 0.25mg [Concomitant]
     Indication: Product used for unknown indication
  10. Ferrous Gluconate tablet 240mg [Concomitant]
     Indication: Product used for unknown indication
  11. Multivitamin tablets woman [Concomitant]
     Indication: Product used for unknown indication
  12. levothyroxine tablet 75mcg [Concomitant]
     Indication: Thyroid disorder
  13. MUPIROCIN [Concomitant]
     Active Substance: MUPIROCIN
     Indication: Product used for unknown indication
  14. B12 TAB 1000MCG [Concomitant]
     Indication: Product used for unknown indication

REACTIONS (5)
  - Abdominal discomfort [Not Recovered/Not Resolved]
  - Nausea [Not Recovered/Not Resolved]
  - Diarrhoea [Not Recovered/Not Resolved]
  - Blood pressure increased [Unknown]
  - Drug interaction [Unknown]
